FAERS Safety Report 16174453 (Version 2)
Quarter: 2019Q2

REPORT INFORMATION
  Report Type: Spontaneous
  Country: US (occurrence: US)
  Receive Date: 20190409
  Receipt Date: 20190502
  Transmission Date: 20190711
  Serious: Yes (Other)
  Sender: FDA-Public Use
  Company Number: US-PFIZER INC-2019148983

PATIENT
  Age: 47 Year
  Sex: Female
  Weight: 93 kg

DRUGS (1)
  1. GABAPENTIN. [Suspect]
     Active Substance: GABAPENTIN
     Indication: NEUROPATHY PERIPHERAL
     Dosage: UNK, 3X/DAY (A BEIGE CAPSULE, DOESN^T REMEMBER DOSAGE, THREE TIMES A DAY, BY MOUTH)
     Route: 048
     Dates: end: 2013

REACTIONS (3)
  - Drug ineffective for unapproved indication [Not Recovered/Not Resolved]
  - Cardiac failure congestive [Unknown]
  - Arthritis [Unknown]

NARRATIVE: CASE EVENT DATE: 2009
